FAERS Safety Report 8565425-1 (Version None)
Quarter: 2012Q3

REPORT INFORMATION
  Report Type: 
  Country: None (occurrence: None)
  Receive Date: 20120803
  Receipt Date: 20120730
  Transmission Date: 20120928
  Serious: Yes (Hospitalization, Other)
  Sender: FDA-Public Use
  Company Number: DE-SANOFI-AVENTIS-2012SA046400

PATIENT
  Age: 43 Year
  Sex: Female
  Weight: 70 kg

DRUGS (7)
  1. OMEPRAZOLE [Concomitant]
     Route: 048
  2. HUMALOG [Concomitant]
     Route: 058
  3. METOPROLOL SUCCINATE [Concomitant]
     Route: 048
  4. HUMALOG [Concomitant]
     Indication: PUMP RESERVOIR ISSUE
     Route: 058
  5. BUDENOFALK [Concomitant]
     Indication: COLITIS
     Route: 048
  6. LANTUS [Suspect]
     Route: 058
     Dates: start: 19950101, end: 20020101
  7. CALCIUM/COLECALCIFEROL [Concomitant]
     Route: 048

REACTIONS (1)
  - BREAST CANCER [None]
